FAERS Safety Report 10049560 (Version 2)
Quarter: 2014Q2

REPORT INFORMATION
  Report Type: Spontaneous
  Country: US (occurrence: US)
  Receive Date: 20140401
  Receipt Date: 20140401
  Transmission Date: 20141212
  Serious: Yes (Other)
  Sender: FDA-Public Use
  Company Number: PHEH2013US013675

PATIENT
  Sex: Male

DRUGS (2)
  1. CLOZAPINE [Suspect]
  2. CLOZARIL [Suspect]

REACTIONS (4)
  - Paranoia [Unknown]
  - Fear [Unknown]
  - Staring [Unknown]
  - Drug ineffective [Unknown]
